FAERS Safety Report 9032021 (Version 2)
Quarter: 2014Q2

REPORT INFORMATION
  Report Type: Spontaneous
  Country: US (occurrence: US)
  Receive Date: 20130125
  Receipt Date: 20140423
  Transmission Date: 20141212
  Serious: Yes (Other)
  Sender: FDA-Public Use
  Company Number: US-PFIZER INC-2013030412

PATIENT
  Age: 65 Year
  Sex: Male

DRUGS (4)
  1. CHANTIX [Suspect]
     Dosage: UNK
     Dates: start: 200806, end: 200807
  2. CHANTIX [Suspect]
     Dosage: 1 MG, 2X/DAY
     Route: 048
     Dates: start: 20080804
  3. ZOCOR [Concomitant]
     Dosage: 20 MG, 1X/DAY (EVERY EVENING)
     Route: 048
  4. TOPROL XL [Concomitant]
     Dosage: 50 MG, DAILY
     Route: 048

REACTIONS (6)
  - Myocardial infarction [Unknown]
  - Cardiac disorder [Unknown]
  - Cardiac ventricular disorder [Unknown]
  - Migraine [Unknown]
  - Heart rate irregular [Unknown]
  - Dizziness [Unknown]
